FAERS Safety Report 7888019-X (Version None)
Quarter: 2011Q4

REPORT INFORMATION
  Report Type: 
  Country: None (occurrence: None)
  Receive Date: 20111101
  Receipt Date: 20111017
  Transmission Date: 20120403
  Serious: Yes (Other)
  Sender: FDA-Public Use
  Company Number: 2011MA015280

PATIENT
  Age: 61 Year
  Sex: Male
  Weight: 105.2 kg

DRUGS (8)
  1. DILTIAZEM HYDROCHLORIDE [Suspect]
     Indication: SUPRAVENTRICULAR TACHYCARDIA
     Dosage: 240 MG;QD;PO
     Route: 048
  2. DILTIAZEM HYDROCHLORIDE [Suspect]
     Indication: VENTRICULAR EXTRASYSTOLES
     Dosage: 240 MG;QD;PO
     Route: 048
  3. ASPIRIN [Concomitant]
  4. EZETIMIBE [Concomitant]
  5. CITALOPRAM HYDROBROMIDE [Concomitant]
  6. PANTOPRAZOLE [Concomitant]
  7. SIMVASTATIN [Concomitant]
  8. ATENOLOL [Concomitant]

REACTIONS (11)
  - MYOCLONUS [None]
  - BALANCE DISORDER [None]
  - TRANSFERRIN SATURATION DECREASED [None]
  - SERUM FERRITIN DECREASED [None]
  - BLOOD GLUCOSE INCREASED [None]
  - EXERCISE TOLERANCE DECREASED [None]
  - IRON BINDING CAPACITY TOTAL INCREASED [None]
  - RESPIRATORY DISORDER [None]
  - SLEEP APNOEA SYNDROME [None]
  - STEREOTYPY [None]
  - PERIODIC LIMB MOVEMENT DISORDER [None]
